FAERS Safety Report 4947521-0 (Version None)
Quarter: 2006Q1

REPORT INFORMATION
  Report Type: 
  Country: None (occurrence: None)
  Receive Date: 20060314
  Receipt Date: 20060308
  Transmission Date: 20060701
  Serious: Yes (Hospitalization)
  Sender: FDA-Public Use
  Company Number: DE-2006-004029

PATIENT
  Age: 66 Year
  Sex: Female
  Weight: 70 kg

DRUGS (1)
  1. ULTRAVIST 300 [Suspect]
     Indication: COMPUTERISED TOMOGRAM ABDOMEN
     Dosage: 100ML, 1 DOSE, INTRAVENOUS
     Route: 042
     Dates: start: 20060214, end: 20060214

REACTIONS (4)
  - EYE OEDEMA [None]
  - PRURITUS [None]
  - SKIN REACTION [None]
  - SNEEZING [None]
